FAERS Safety Report 17810901 (Version 1)
Quarter: 2020Q2

REPORT INFORMATION
  Report Type: Spontaneous
  Country: FR (occurrence: FR)
  Receive Date: 20200521
  Receipt Date: 20200521
  Transmission Date: 20200714
  Serious: Yes (Life-Threatening, Hospitalization, Other)
  Sender: FDA-Public Use
  Company Number: FR-SUN PHARMACEUTICAL INDUSTRIES LTD-2020RR-247731

PATIENT
  Age: 24 Year
  Sex: Male

DRUGS (10)
  1. LAMALINE [CAFFEINE/OPIUM/PARACETAMOL] [Suspect]
     Active Substance: ACETAMINOPHEN\CAFFEINE\OPIUM
     Indication: PRODUCT USED FOR UNKNOWN INDICATION
     Dosage: BETWEEN 3:30 P.M. AND 7:30 P.M., THE PATIENT INGESTED IN TOTAL ; IN TOTAL
     Route: 048
  2. VALIUM [Suspect]
     Active Substance: DIAZEPAM
     Dosage: PROGRESSIVE DECREASE
     Route: 065
  3. CYMBALTA [Suspect]
     Active Substance: DULOXETINE HYDROCHLORIDE
     Dosage: BETWEEN 3:30 P.M. AND 7:30 P.M., THE PATIENT INGESTED IN TOTAL ; IN TOTAL
     Route: 048
  4. BISOPROLOL [Suspect]
     Active Substance: BISOPROLOL
     Indication: PRODUCT USED FOR UNKNOWN INDICATION
     Dosage: BETWEEN 3:30 P.M. AND 7:30 P.M., THE PATIENT INGESTED IN TOTAL ; IN TOTAL
     Route: 048
  5. VOGALENE [Suspect]
     Active Substance: METOPIMAZINE
     Indication: PRODUCT USED FOR UNKNOWN INDICATION
     Dosage: BETWEEN 3:30 P.M. AND 7:30 P.M., THE PATIENT INGESTED IN TOTAL ; IN TOTAL
     Route: 048
  6. VALIUM [Suspect]
     Active Substance: DIAZEPAM
     Indication: PRODUCT USED FOR UNKNOWN INDICATION
     Dosage: 10 MILLIGRAM, DAILY
     Route: 065
  7. VALIUM [Suspect]
     Active Substance: DIAZEPAM
     Dosage: BETWEEN 3:30 P.M. AND 7:30 P.M., THE PATIENT INGESTED IN TOTAL: 700 MG DIAZEPAM ; IN TOTAL
     Route: 048
  8. CYMBALTA [Suspect]
     Active Substance: DULOXETINE HYDROCHLORIDE
     Indication: ANTIDEPRESSANT THERAPY
     Dosage: IN THE MORNING
     Route: 065
  9. FLECAINIDE [Suspect]
     Active Substance: FLECAINIDE
     Indication: PRODUCT USED FOR UNKNOWN INDICATION
     Dosage: BETWEEN 3:30 P.M. AND 7:30 P.M., THE PATIENT INGESTED IN TOTAL; SLOW-RELEASE ; IN TOTAL
     Route: 048
  10. PARACETAMOL [Suspect]
     Active Substance: ACETAMINOPHEN
     Indication: PRODUCT USED FOR UNKNOWN INDICATION
     Dosage: BETWEEN 3:30 P.M. AND 7:30 P.M., THE PATIENT INGESTED IN TOTAL ; IN TOTAL
     Route: 048

REACTIONS (22)
  - Pupillary disorder [Recovered/Resolved]
  - Electrocardiogram PR prolongation [Recovered/Resolved]
  - Electrocardiogram QRS complex prolonged [Recovered/Resolved]
  - Bradycardia [Recovered/Resolved]
  - Bundle branch block right [Recovered/Resolved]
  - Respiration abnormal [Recovered/Resolved]
  - Atrioventricular block first degree [Recovered/Resolved]
  - Coma [Recovered/Resolved]
  - Intentional overdose [Unknown]
  - Bezoar [Recovered/Resolved]
  - Hypotension [Recovered/Resolved]
  - Ejection fraction decreased [Recovered/Resolved]
  - Tremor [Recovered/Resolved]
  - Electrocardiogram QT prolonged [Recovered/Resolved]
  - Pneumonia aspiration [Unknown]
  - Hypothermia [Recovered/Resolved]
  - Hypertonia [Recovered/Resolved]
  - Toxicity to various agents [Unknown]
  - Reflexes abnormal [Recovered/Resolved]
  - Ventricular tachycardia [Recovered/Resolved]
  - Respiratory acidosis [Recovered/Resolved]
  - Suicide attempt [Unknown]
